FAERS Safety Report 10969304 (Version 1)
Quarter: 2015Q1

REPORT INFORMATION
  Report Type: Spontaneous
  Country: JP (occurrence: JP)
  Receive Date: 20150331
  Receipt Date: 20150331
  Transmission Date: 20150721
  Serious: Yes (Other)
  Sender: FDA-Public Use
  Company Number: JP-009507513-1503JPN013888

PATIENT
  Age: 77 Year
  Sex: Female

DRUGS (2)
  1. ROCURONIUM BROMIDE. [Suspect]
     Active Substance: ROCURONIUM BROMIDE
     Dosage: DAILY DOSAGE UNKNOWN
     Route: 042
  2. BRIDION [Concomitant]
     Active Substance: SUGAMMADEX
     Dosage: 4 MG/KG
     Route: 042

REACTIONS (3)
  - Myasthenia gravis [Unknown]
  - Respiratory disorder [Unknown]
  - Delayed recovery from anaesthesia [Recovered/Resolved]
